FAERS Safety Report 18107734 (Version 1)
Quarter: 2020Q3

REPORT INFORMATION
  Report Type: Spontaneous
  Country: PT (occurrence: PT)
  Receive Date: 20200803
  Receipt Date: 20200803
  Transmission Date: 20201103
  Serious: Yes (Life-Threatening, Hospitalization, Other)
  Sender: FDA-Public Use
  Company Number: PT-JNJFOC-20200743660

PATIENT
  Age: 77 Year
  Sex: Male

DRUGS (2)
  1. ZYTIGA [Suspect]
     Active Substance: ABIRATERONE ACETATE
     Indication: PROSTATE CANCER METASTATIC
     Route: 048
     Dates: start: 201502
  2. PREDNISOLONE. [Suspect]
     Active Substance: PREDNISOLONE
     Indication: PROSTATE CANCER METASTATIC
     Route: 065
     Dates: start: 201502

REACTIONS (4)
  - Acute respiratory distress syndrome [Recovered/Resolved]
  - Bacterial infection [Recovered/Resolved]
  - COVID-19 [Recovered/Resolved]
  - Dependence on respirator [Recovered/Resolved]
